FAERS Safety Report 5599457-2 (Version None)
Quarter: 2007Q4

REPORT INFORMATION
  Report Type: 
  Country: None (occurrence: None)
  Receive Date: 20071226
  Receipt Date: 20071126
  Transmission Date: 20080405
  Serious: No
  Sender: FDA-Public Use
  Company Number: PHEH2007US15121

PATIENT
  Sex: Female

DRUGS (1)
  1. TYZEKA [Suspect]
     Indication: DRUG USE FOR UNKNOWN INDICATION
     Dosage: 600 MG
     Dates: start: 20071124

REACTIONS (3)
  - ASTHENIA [None]
  - MIGRAINE [None]
  - VOMITING [None]
